FAERS Safety Report 18957135 (Version 1)
Quarter: 2021Q1

REPORT INFORMATION
  Report Type: Spontaneous
  Country: IT (occurrence: IT)
  Receive Date: 20210302
  Receipt Date: 20210302
  Transmission Date: 20210420
  Serious: Yes (Other)
  Sender: FDA-Public Use
  Company Number: IT-AMGEN-ITASP2021031820

PATIENT
  Age: 57 Year
  Sex: Female

DRUGS (6)
  1. BEVACIZUMAB. [Suspect]
     Active Substance: BEVACIZUMAB
     Indication: CERVIX CARCINOMA
     Dosage: 15 MILLIGRAM/KILOGRAM, Q3WK
     Route: 042
     Dates: start: 20191109, end: 20210113
  2. AKYNZEO [Concomitant]
     Active Substance: NETUPITANT\PALONOSETRON HYDROCHLORIDE
  3. TISOTUMAB VEDOTIN. [Suspect]
     Active Substance: TISOTUMAB VEDOTIN
     Indication: CERVIX CANCER METASTATIC
     Dosage: 1.3 MILLIGRAM/KILOGRAM, Q3WK
     Route: 042
     Dates: start: 20191109, end: 20210113
  4. TRIMETON [Concomitant]
     Active Substance: CHLORPHENIRAMINE MALEATE
  5. HYALISTIL [Concomitant]
  6. AMERICAN GINSENG. [Concomitant]
     Active Substance: AMERICAN GINSENG
     Dosage: UNK, ONGOING
     Dates: start: 20200220

REACTIONS (1)
  - Ulcerative keratitis [Not Recovered/Not Resolved]

NARRATIVE: CASE EVENT DATE: 20210202
